FAERS Safety Report 24528960 (Version 1)
Quarter: 2024Q4

REPORT INFORMATION
  Report Type: Spontaneous
  Country: US (occurrence: US)
  Receive Date: 20241021
  Receipt Date: 20241021
  Transmission Date: 20250115
  Serious: Yes (Other)
  Sender: PFIZER
  Company Number: US-PFIZER INC-202400279765

PATIENT
  Age: 29 Year
  Sex: Female

DRUGS (1)
  1. VELSIPITY [Suspect]
     Active Substance: ETRASIMOD ARGININE
     Indication: Colitis
     Dosage: UNK
     Route: 048

REACTIONS (2)
  - Rectal haemorrhage [Not Recovered/Not Resolved]
  - Colonic abscess [Unknown]
